FAERS Safety Report 7563013-7 (Version None)
Quarter: 2011Q2

REPORT INFORMATION
  Report Type: 
  Country: None (occurrence: None)
  Receive Date: 20110615
  Receipt Date: 20110607
  Transmission Date: 20111010
  Serious: Yes (Hospitalization)
  Sender: FDA-Public Use
  Company Number: 2009EN000321

PATIENT

DRUGS (14)
  1. ACETAMINOPHEN [Concomitant]
  2. SODIUM CHLORIDE [Concomitant]
  3. SEVOFLURANE [Concomitant]
  4. ONDANSETRON [Concomitant]
  5. HEPARIN [Concomitant]
  6. METHOTREXATE [Suspect]
     Indication: CHEMOTHERAPY
     Dosage: 15 MG;	;INTH
     Route: 055
     Dates: start: 20090811
  7. METHOTREXATE [Suspect]
     Indication: CHEMOTHERAPY
     Dosage: 15 MG;	;INTH
     Route: 055
     Dates: start: 20090821
  8. ANIDULAFUNGIN [Suspect]
     Indication: SYSTEMIC CANDIDA
     Dosage: 137.9 ML;QD;IV,  69 ML;QD;IV  I
     Route: 042
     Dates: start: 20090917, end: 20090917
  9. ANIDULAFUNGIN [Suspect]
     Indication: SYSTEMIC CANDIDA
     Dosage: 137.9 ML;QD;IV,  69 ML;QD;IV  I
     Route: 042
     Dates: start: 20090918, end: 20090926
  10. FLUCONAZOLE [Suspect]
     Indication: SYSTEMIC CANDIDA
     Dosage: 200 MG; QD; PO
     Route: 048
     Dates: start: 20090927
  11. ONCASPAR [Suspect]
     Indication: CHEMOTHERAPY
     Dosage: 750 IU/ML;QM;IM
     Route: 030
     Dates: start: 20090808
  12. SULFATRIM [Concomitant]
  13. PROPOFOL [Concomitant]
  14. IV FLUIDS [Concomitant]

REACTIONS (8)
  - SCREAMING [None]
  - INCOHERENT [None]
  - ABNORMAL BEHAVIOUR [None]
  - AGGRESSION [None]
  - BLOOD POTASSIUM DECREASED [None]
  - AGITATION [None]
  - CRYING [None]
  - MENTAL STATUS CHANGES [None]
